FAERS Safety Report 18192710 (Version 2)
Quarter: 2020Q3

REPORT INFORMATION
  Report Type: Report from Study
  Country: MX (occurrence: MX)
  Receive Date: 20200825
  Receipt Date: 20200918
  Transmission Date: 20201103
  Serious: Yes (Other)
  Sender: FDA-Public Use
  Company Number: MX-ADVANZ PHARMA-202008008105

PATIENT

DRUGS (1)
  1. HYDROXYCHLOROQUINE [Suspect]
     Active Substance: HYDROXYCHLOROQUINE
     Indication: COVID-19
     Dosage: 200 MG, BID (200 MG, Q12H)
     Route: 048
     Dates: start: 20200713, end: 20200723

REACTIONS (5)
  - Transaminases increased [Recovered/Resolved]
  - Off label use [Unknown]
  - Blood bilirubin increased [Recovered/Resolved]
  - Respiratory distress [Recovered/Resolved]
  - Electrocardiogram QT prolonged [Recovered/Resolved]

NARRATIVE: CASE EVENT DATE: 20200713
